FAERS Safety Report 9087670 (Version 1)
Quarter: 2013Q1

REPORT INFORMATION
  Report Type: Spontaneous
  Country: US (occurrence: US)
  Receive Date: 20130131
  Receipt Date: 20130131
  Transmission Date: 20140127
  Serious: Yes (Life-Threatening, Hospitalization, Other)
  Sender: FDA-Public Use
  Company Number: US-ELI_LILLY_AND_COMPANY-US201301009597

PATIENT
  Age: 60 Year
  Sex: Male

DRUGS (20)
  1. EFFIENT [Suspect]
     Dosage: 10 MG, QD
     Route: 048
     Dates: start: 20110614
  2. ASPIRIN [Concomitant]
     Dosage: 81 MG, QD
     Dates: start: 20110711
  3. BENAZEPRIL [Concomitant]
     Dosage: 40 MG, QD
     Dates: start: 20110615, end: 20110711
  4. CLOPIDOGREL [Concomitant]
  5. GLIPIZIDE [Concomitant]
     Dosage: 5 MG, BID
     Dates: start: 2011
  6. METFORMIN [Concomitant]
     Dosage: 1000 MG, BID
     Dates: start: 2011
  7. PRAVASTATIN [Concomitant]
     Dosage: 20 MG, QD
     Dates: start: 20110614
  8. TERAZOSIN [Concomitant]
     Dosage: 2 MG, QD
     Dates: start: 20110808
  9. CELEXA [Concomitant]
     Dosage: 20 MG, QD
     Dates: start: 20110711
  10. INDOCIN [Concomitant]
     Dosage: 25 MG, PRN
     Dates: start: 20110711
  11. NAPROXEN [Concomitant]
     Dosage: 500 MG, PRN
     Dates: start: 2009
  12. OMEPRAZOLE [Concomitant]
     Dosage: 20 MG, QD
     Dates: start: 20110711
  13. LOPRESSOR [Concomitant]
     Dosage: 50 MG, QD
     Dates: start: 20110615, end: 20110711
  14. CRESTOR [Concomitant]
     Dosage: 5 MG, QD
     Dates: start: 20110614, end: 20110711
  15. LOTENSIN [Concomitant]
     Dosage: 40 MG, QD
     Dates: start: 20110615, end: 20110711
  16. NITROSTAT [Concomitant]
     Dosage: 0.4 MG, PRN
     Dates: start: 20110808
  17. AMBIEN [Concomitant]
     Dosage: 10 MG, PRN
     Dates: start: 20110711
  18. FERROUS SULFATE [Concomitant]
     Dosage: 325 MG, BID
     Dates: start: 20110830, end: 20111011
  19. LASIX [Concomitant]
     Dosage: 20 MG, PRN
     Dates: start: 20110830, end: 20111011
  20. POTASSIUM [Concomitant]
     Dosage: 20 MEQ, QD
     Dates: start: 20110830, end: 20111011

REACTIONS (4)
  - Colon cancer [Recovered/Resolved]
  - Peritonitis [Recovered/Resolved]
  - Cholelithiasis [Unknown]
  - Anaemia [Recovered/Resolved]
